FAERS Safety Report 22216803 (Version 1)
Quarter: 2023Q2

REPORT INFORMATION
  Report Type: Spontaneous
  Country: US (occurrence: US)
  Receive Date: 20230417
  Receipt Date: 20230417
  Transmission Date: 20230722
  Serious: Yes (Hospitalization, Other)
  Sender: FDA-Public Use
  Company Number: US-SUN PHARMACEUTICAL INDUSTRIES LTD-2023R1-384608

PATIENT
  Age: 30 Year
  Sex: Male

DRUGS (3)
  1. TEMOZOLOMIDE [Suspect]
     Active Substance: TEMOZOLOMIDE
     Indication: Neoplasm progression
     Dosage: 150 MILLIGRAM/SQ. METER, ON DAYS 1-5 ADMINISTERED EVERY 21 DAYS
     Route: 048
  2. CISPLATIN [Suspect]
     Active Substance: CISPLATIN
     Indication: Neoplasm progression
     Dosage: 20 MILLIGRAM/SQ. METER, ON DAYS 1-4
     Route: 042
  3. VINBLASTINE [Suspect]
     Active Substance: VINBLASTINE
     Indication: Neoplasm progression
     Dosage: 1.6 MILLIGRAM/SQ. METER, ON DAYS 1-4
     Route: 042

REACTIONS (2)
  - Intussusception [Unknown]
  - Metastasis [Unknown]
